FAERS Safety Report 10929385 (Version 2)
Quarter: 2015Q2

REPORT INFORMATION
  Report Type: Spontaneous
  Country: US (occurrence: US)
  Receive Date: 20150319
  Receipt Date: 20150524
  Transmission Date: 20150821
  Serious: No
  Sender: FDA-Public Use
  Company Number: US-JNJFOC-20121109694

PATIENT
  Sex: Male
  Weight: 62.6 kg

DRUGS (1)
  1. METHYLPHENIDATE HCL (WATSON) [Suspect]
     Active Substance: METHYLPHENIDATE HYDROCHLORIDE
     Indication: EXECUTIVE DYSFUNCTION
     Dosage: TAKES AT 7 AM
     Route: 048
     Dates: start: 2010

REACTIONS (2)
  - Drug dose omission [Unknown]
  - Decreased appetite [Not Recovered/Not Resolved]
